FAERS Safety Report 9482452 (Version 1)
Quarter: 2013Q3

REPORT INFORMATION
  Report Type: Spontaneous
  Country: DE (occurrence: DE)
  Receive Date: 20130828
  Receipt Date: 20130828
  Transmission Date: 20140515
  Serious: Yes (Other)
  Sender: FDA-Public Use
  Company Number: DE-AMGEN-DEUSP2013060097

PATIENT
  Age: 66 Year
  Sex: Female

DRUGS (8)
  1. ENBREL [Suspect]
     Indication: RHEUMATOID ARTHRITIS
     Dosage: 50 MG, WEEKLY
     Route: 065
     Dates: start: 20120517, end: 20130604
  2. L-THYROXIN [Concomitant]
     Dosage: UNK
  3. OLMETEC [Concomitant]
     Dosage: UNK
  4. VERAPAMIL [Concomitant]
     Dosage: UNK
  5. ARCOXIA [Concomitant]
     Dosage: UNK
  6. CALCIUM [Concomitant]
     Dosage: UNK
  7. DEKRISTOL [Concomitant]
     Dosage: UNK, EVERY 14 DAYS
  8. OXYGESIC [Concomitant]
     Dosage: 30 MG, UNK

REACTIONS (2)
  - Musculoskeletal disorder [Unknown]
  - Urinary tract infection [Unknown]
